FAERS Safety Report 10066801 (Version 2)
Quarter: 2014Q2

REPORT INFORMATION
  Report Type: Report from Study
  Country: CA (occurrence: CA)
  Receive Date: 20140408
  Receipt Date: 20140408
  Transmission Date: 20141212
  Serious: Yes (Hospitalization, Other)
  Sender: FDA-Public Use
  Company Number: PHHY2014CA032274

PATIENT
  Sex: Male

DRUGS (8)
  1. CLOZARIL [Suspect]
     Indication: SCHIZOPHRENIA
     Dosage: 275 MG, QD
     Route: 048
     Dates: start: 20110712
  2. CLOZARIL [Suspect]
     Indication: PSYCHOTIC DISORDER
     Dosage: 100 MG, UNK
     Route: 048
  3. CLOZARIL [Suspect]
     Dosage: 200 MG, UNK
     Route: 048
  4. CLOZARIL [Suspect]
     Dosage: 25 MG, UNK
     Route: 048
  5. CLOZARIL [Suspect]
     Dosage: 100 MG, UNK
  6. LOXAPINE [Concomitant]
  7. COGENTIN [Concomitant]
  8. SEROQUEL [Concomitant]

REACTIONS (6)
  - Constipation [Recovered/Resolved]
  - Intestinal obstruction [Recovering/Resolving]
  - Abdominal discomfort [Recovering/Resolving]
  - Drug level increased [Unknown]
  - Respiratory tract infection [Recovering/Resolving]
  - Psychotic disorder [Recovering/Resolving]
